FAERS Safety Report 16469337 (Version 1)
Quarter: 2019Q2

REPORT INFORMATION
  Report Type: Spontaneous
  Country: DE (occurrence: DE)
  Receive Date: 20190624
  Receipt Date: 20190624
  Transmission Date: 20190711
  Serious: Yes (Death, Hospitalization, Other)
  Sender: FDA-Public Use
  Company Number: DE-SA-2019SA167269

PATIENT
  Age: 85 Year
  Sex: Female

DRUGS (10)
  1. PANTOPRAZOL ARISTO [Concomitant]
     Active Substance: PANTOPRAZOLE SODIUM
     Dosage: 1-0-0-0
  2. NITRENDIPIN-RATIOPHARM [Concomitant]
     Dosage: 0,5 - 0 - 0,5 - 0
  3. INEGY [Concomitant]
     Active Substance: EZETIMIBE\SIMVASTATIN
     Dosage: 1 DF, QD
  4. TORASEMID-1A PHARMA [Concomitant]
     Active Substance: TORSEMIDE
     Dosage: 1-1-0-0
  5. PLAVIX [Suspect]
     Active Substance: CLOPIDOGREL BISULFATE
     Indication: ATRIAL FIBRILLATION
     Dosage: UNK
     Route: 048
  6. TAFINLAR [Suspect]
     Active Substance: DABRAFENIB MESYLATE
     Indication: MALIGNANT MELANOMA
     Dosage: 300 MG, QD (2-0-2)
     Route: 048
  7. MEKINIST [Suspect]
     Active Substance: TRAMETINIB DIMETHYL SULFOXIDE
     Indication: MALIGNANT MELANOMA
     Dosage: 0-0-1
     Route: 048
  8. RAMIPRIL RATIOPHARM [Concomitant]
     Active Substance: RAMIPRIL
     Dosage: 1-0-0-0
  9. METOHEXAL SUCC [Concomitant]
     Active Substance: METOPROLOL SUCCINATE
     Dosage: 47.5 MG, QD
  10. KALINOR [POTASSIUM CHLORIDE] [Concomitant]
     Dosage: 40 MMOL, QD

REACTIONS (2)
  - Multiple organ dysfunction syndrome [Fatal]
  - Pancreatitis [Not Recovered/Not Resolved]

NARRATIVE: CASE EVENT DATE: 20190521
